FAERS Safety Report 13047383 (Version 1)
Quarter: 2016Q4

REPORT INFORMATION
  Report Type: Other
  Country: None (occurrence: US)
  Receive Date: 20161220
  Receipt Date: 20161220
  Transmission Date: 20170207
  Serious: Yes (Life-Threatening, Other)
  Sender: FDA-Public Use
  Company Number: US-CONCORDIA LABORATORIES INC.-PIN-2016-00072

PATIENT

DRUGS (1)
  1. PHOTOFRIN [Suspect]
     Active Substance: PORFIMER SODIUM
     Indication: CARCINOID TUMOUR
     Dosage: 1-2 MG/KG
     Route: 042

REACTIONS (2)
  - Off label use [Unknown]
  - Mechanical ventilation [Unknown]
